FAERS Safety Report 16903581 (Version 1)
Quarter: 2019Q4

REPORT INFORMATION
  Report Type: Spontaneous
  Country: JP (occurrence: JP)
  Receive Date: 20191010
  Receipt Date: 20191010
  Transmission Date: 20200122
  Serious: Yes (Other)
  Sender: FDA-Public Use
  Company Number: JP-ASTRAZENECA-2019SF43653

PATIENT
  Age: 90 Year
  Sex: Male

DRUGS (5)
  1. SUVOREXANT. [Concomitant]
     Active Substance: SUVOREXANT
  2. SEROQUEL [Suspect]
     Active Substance: QUETIAPINE FUMARATE
     Indication: DELIRIUM
     Dosage: 12.5MG UNKNOWN
     Route: 048
  3. TETRAMIDE [Concomitant]
     Active Substance: MIANSERIN
     Route: 048
  4. URIEF [Concomitant]
     Active Substance: SILODOSIN
  5. SILECE [Concomitant]
     Active Substance: FLUNITRAZEPAM

REACTIONS (3)
  - Depressed level of consciousness [Recovering/Resolving]
  - Off label use [Unknown]
  - Sedation complication [Unknown]
